FAERS Safety Report 13543064 (Version 1)
Quarter: 2017Q2

REPORT INFORMATION
  Report Type: Spontaneous
  Country: US (occurrence: US)
  Receive Date: 20170512
  Receipt Date: 20170512
  Transmission Date: 20170830
  Serious: No
  Sender: FDA-Public Use
  Company Number: None

PATIENT
  Age: 65 Year
  Sex: Male
  Weight: 58.5 kg

DRUGS (1)
  1. LISINOPRIL. [Suspect]
     Active Substance: LISINOPRIL
     Indication: HYPERTENSION
     Route: 048
     Dates: start: 20170401, end: 20170402

REACTIONS (4)
  - Angioedema [None]
  - Dyspnoea [None]
  - Suicidal ideation [None]
  - Respiratory distress [None]

NARRATIVE: CASE EVENT DATE: 20170402
